FAERS Safety Report 9654408 (Version 1)
Quarter: 2013Q4

REPORT INFORMATION
  Report Type: Spontaneous
  Country: BR (occurrence: BR)
  Receive Date: 20131029
  Receipt Date: 20131029
  Transmission Date: 20140711
  Serious: Yes (Other)
  Sender: FDA-Public Use
  Company Number: PHHY2013BR121014

PATIENT
  Sex: Female
  Weight: 70 kg

DRUGS (3)
  1. GALVUS MET [Suspect]
     Indication: DIABETES MELLITUS
     Dosage: 1 DF(1000MG METF/50 MG VILD), BID (1 TABLET IN MORN AND 1 TABLET AT NIGHT )
     Route: 048
  2. RASILEZ AMLO [Suspect]
     Indication: HYPERTENSION
     Dosage: 1 DF (300MG ALIS/5 MG AMLO), DAILY
     Route: 048
  3. ATENOLOL [Suspect]

REACTIONS (8)
  - Cerebral ischaemia [Unknown]
  - Poor peripheral circulation [Not Recovered/Not Resolved]
  - Gait disturbance [Not Recovered/Not Resolved]
  - Sensation of heaviness [Not Recovered/Not Resolved]
  - Dyskinesia [Unknown]
  - Paraesthesia [Unknown]
  - Nausea [Not Recovered/Not Resolved]
  - Anxiety [Unknown]
